FAERS Safety Report 6675521-1 (Version None)
Quarter: 2010Q2

REPORT INFORMATION
  Report Type: 
  Country: None (occurrence: None)
  Receive Date: 20100409
  Receipt Date: 20100331
  Transmission Date: 20101027
  Serious: Yes (Hospitalization)
  Sender: FDA-Public Use
  Company Number: FR-PFIZER INC-2010041103

PATIENT
  Age: 70 Year
  Sex: Female

DRUGS (4)
  1. TAHOR [Suspect]
     Indication: CARDIOVASCULAR EVENT PROPHYLAXIS
     Dosage: 40 MG, 1X/DAY
     Route: 048
     Dates: start: 20100210, end: 20100225
  2. PRASUGREL [Suspect]
     Indication: CARDIOVASCULAR EVENT PROPHYLAXIS
     Dosage: 10 MG, 1X/DAY
     Route: 048
     Dates: start: 20100210, end: 20100225
  3. OMEPRAZOLE [Suspect]
     Indication: ULCER
     Dosage: 20 MG, 1X/DAY
     Route: 048
     Dates: start: 20100210, end: 20100225
  4. ISOPTIN [Suspect]
     Indication: CARDIOVASCULAR EVENT PROPHYLAXIS
     Dosage: 120 MG, 1X/DAY
     Route: 048
     Dates: start: 20100210, end: 20100225

REACTIONS (1)
  - RASH GENERALISED [None]
